FAERS Safety Report 14861219 (Version 2)
Quarter: 2018Q2

REPORT INFORMATION
  Report Type: Spontaneous
  Country: US (occurrence: US)
  Receive Date: 20180508
  Receipt Date: 20180511
  Transmission Date: 20180711
  Serious: Yes (Other)
  Sender: FDA-Public Use
  Company Number: US-AKORN PHARMACEUTICALS-2018AKN00575

PATIENT
  Age: 17 Year
  Sex: Male
  Weight: 72.56 kg

DRUGS (2)
  1. MYORISAN [Suspect]
     Active Substance: ISOTRETINOIN
     Indication: ACNE
     Dosage: 40 MG, 2X/DAY
     Dates: start: 20180326, end: 20180420
  2. MYORISAN [Suspect]
     Active Substance: ISOTRETINOIN
     Dosage: 40 MG, 1X/DAY
     Dates: start: 20180421, end: 20180425

REACTIONS (5)
  - Lip dry [Unknown]
  - Mood swings [Unknown]
  - Off label use [Recovered/Resolved]
  - Anger [Unknown]
  - Dry skin [Unknown]

NARRATIVE: CASE EVENT DATE: 2018
